FAERS Safety Report 22912822 (Version 3)
Quarter: 2025Q1

REPORT INFORMATION
  Report Type: Spontaneous
  Country: OM (occurrence: OM)
  Receive Date: 20230906
  Receipt Date: 20250113
  Transmission Date: 20250408
  Serious: Yes (Other)
  Sender: NOVARTIS
  Company Number: OM-SANDOZ-SDZ2023OM021091

PATIENT
  Age: 62 Year
  Sex: Female

DRUGS (1)
  1. LETROZOLE [Suspect]
     Active Substance: LETROZOLE
     Indication: Breast cancer
     Dosage: 2.5 MG, DAILY (FOR LAST 4 AND HALF YEARS)
     Route: 065
     Dates: start: 201607, end: 202101

REACTIONS (5)
  - Maculopathy [Recovering/Resolving]
  - Breast cancer recurrent [Unknown]
  - Malignant neoplasm progression [Unknown]
  - Metastases to bone [Unknown]
  - Metastases to lymph nodes [Unknown]
